FAERS Safety Report 4298517-6 (Version None)
Quarter: 2004Q1

REPORT INFORMATION
  Report Type: 
  Country: None (occurrence: None)
  Receive Date: 20040218
  Receipt Date: 20030205
  Transmission Date: 20041129
  Serious: Yes (Hospitalization)
  Sender: FDA-Public Use
  Company Number: WAES 0302KOR00005

PATIENT
  Age: 81 Year
  Sex: Female

DRUGS (4)
  1. ACECLOFENAC [Concomitant]
     Indication: ARTHRITIS
     Route: 048
     Dates: start: 20021105
  2. FOSAMAX [Suspect]
     Indication: OSTEOPOROSIS
     Route: 048
     Dates: start: 20021105, end: 20021101
  3. CALCIUM (UNSPECIFIED) [Concomitant]
     Route: 048
     Dates: start: 20021105
  4. DIAZEPAM [Concomitant]
     Indication: ARTHRITIS
     Route: 048
     Dates: start: 20021105

REACTIONS (3)
  - DIZZINESS [None]
  - NAUSEA [None]
  - VOMITING [None]
